FAERS Safety Report 6237598-7 (Version None)
Quarter: 2009Q2

REPORT INFORMATION
  Report Type: 
  Country: None (occurrence: None)
  Receive Date: 20090619
  Receipt Date: 20090611
  Transmission Date: 20091009
  Serious: Yes (Other)
  Sender: FDA-Public Use
  Company Number: US-MERCK-0906USA02020

PATIENT
  Sex: Female
  Weight: 18 kg

DRUGS (2)
  1. SINGULAIR [Suspect]
     Indication: HYPERSENSITIVITY
     Route: 048
     Dates: start: 20071001, end: 20080415
  2. SINGULAIR [Suspect]
     Indication: ASTHMA
     Route: 048
     Dates: start: 20071001, end: 20080415

REACTIONS (4)
  - AGGRESSION [None]
  - ANXIETY [None]
  - INSOMNIA [None]
  - MOOD ALTERED [None]
